FAERS Safety Report 13549328 (Version 1)
Quarter: 2017Q2

REPORT INFORMATION
  Report Type: Spontaneous
  Country: US (occurrence: US)
  Receive Date: 20170515
  Receipt Date: 20170515
  Transmission Date: 20170830
  Serious: No
  Sender: FDA-Public Use
  Company Number: None

PATIENT
  Age: 46 Year
  Sex: Male
  Weight: 94.5 kg

DRUGS (5)
  1. LEVEMIR [Concomitant]
     Active Substance: INSULIN DETEMIR
  2. BACLOFEN. [Concomitant]
     Active Substance: BACLOFEN
  3. GRALISE [Concomitant]
     Active Substance: GABAPENTIN
  4. HYDRO 7.5/325 [Suspect]
     Active Substance: ACETAMINOPHEN\HYDROCODONE BITARTRATE
     Indication: BACK PAIN
     Dosage: ?          QUANTITY:90 TABLET(S);?
     Route: 048
  5. HYSINGLA ER [Concomitant]
     Active Substance: HYDROCODONE BITARTRATE

REACTIONS (5)
  - Product quality issue [None]
  - Withdrawal syndrome [None]
  - Formication [None]
  - Pain [None]
  - Headache [None]

NARRATIVE: CASE EVENT DATE: 20170501
